FAERS Safety Report 25102784 (Version 1)
Quarter: 2025Q1

REPORT INFORMATION
  Report Type: Report from Study
  Country: CA (occurrence: CA)
  Receive Date: 20250321
  Receipt Date: 20250321
  Transmission Date: 20250408
  Serious: Yes (Hospitalization)
  Sender: AMGEN
  Company Number: CA-BEH-2025199192

PATIENT
  Age: 84 Year
  Sex: Male

DRUGS (1)
  1. AVACOPAN [Suspect]
     Active Substance: AVACOPAN
     Indication: Anti-neutrophil cytoplasmic antibody positive vasculitis
     Dosage: 30 MG, BID
     Route: 048
     Dates: start: 20250220, end: 2025

REACTIONS (4)
  - Fatigue [Unknown]
  - Chills [Unknown]
  - Cough [Unknown]
  - Tremor [Unknown]

NARRATIVE: CASE EVENT DATE: 20250311
